FAERS Safety Report 23287570 (Version 2)
Quarter: 2023Q4

REPORT INFORMATION
  Report Type: Spontaneous
  Country: DE (occurrence: DE)
  Receive Date: 20231212
  Receipt Date: 20231221
  Transmission Date: 20240110
  Serious: Yes (Death, Other)
  Sender: FDA-Public Use
  Company Number: DE-AUROBINDO-AUR-APL-2023-077243

PATIENT
  Age: 8 Year
  Sex: Male

DRUGS (8)
  1. VINORELBINE [Suspect]
     Active Substance: VINORELBINE TARTRATE
     Indication: Alveolar rhabdomyosarcoma
     Dosage: UNK
     Route: 065
  2. VINORELBINE [Suspect]
     Active Substance: VINORELBINE TARTRATE
     Dosage: UNK
     Route: 065
     Dates: start: 202204, end: 202210
  3. IRINOTECAN [Suspect]
     Active Substance: IRINOTECAN
     Indication: Alveolar rhabdomyosarcoma
     Dosage: UNK
     Route: 065
     Dates: start: 202204, end: 202210
  4. IRINOTECAN [Suspect]
     Active Substance: IRINOTECAN
     Dosage: UNK
  5. DASATINIB [Suspect]
     Active Substance: DASATINIB
     Indication: Alveolar rhabdomyosarcoma
     Dosage: UNK
     Route: 065
     Dates: start: 202204, end: 202210
  6. SIROLIMUS [Suspect]
     Active Substance: SIROLIMUS
     Indication: Alveolar rhabdomyosarcoma
     Dosage: UNK
     Route: 065
     Dates: start: 202204, end: 202210
  7. TEMOZOLOMIDE [Suspect]
     Active Substance: TEMOZOLOMIDE
     Indication: Alveolar rhabdomyosarcoma
     Dosage: UNK
     Route: 065
     Dates: start: 202204, end: 202210
  8. CYCLOPHOSPHAMIDE [Suspect]
     Active Substance: CYCLOPHOSPHAMIDE
     Indication: Alveolar rhabdomyosarcoma
     Dosage: UNK
     Route: 065

REACTIONS (8)
  - Metastases to central nervous system [Fatal]
  - Disease progression [Fatal]
  - Drug ineffective [Fatal]
  - Drug ineffective for unapproved indication [Fatal]
  - Epilepsy [Unknown]
  - Anxiety [Unknown]
  - Nausea [Unknown]
  - Headache [Unknown]

NARRATIVE: CASE EVENT DATE: 20220101
